FAERS Safety Report 7068886-2 (Version None)
Quarter: 2010Q4

REPORT INFORMATION
  Report Type: 
  Country: None (occurrence: None)
  Receive Date: 20101028
  Receipt Date: 20101026
  Transmission Date: 20110411
  Serious: Yes (Death)
  Sender: FDA-Public Use
  Company Number: JP-SANOFI-AVENTIS-2010SA065291

PATIENT
  Age: 68 Year
  Sex: Male
  Weight: 61 kg

DRUGS (9)
  1. TAXOTERE [Suspect]
     Indication: OESOPHAGEAL CARCINOMA
     Route: 041
     Dates: start: 20100721, end: 20100721
  2. TAXOTERE [Suspect]
     Route: 041
     Dates: start: 20100818, end: 20100818
  3. ARTIST [Concomitant]
  4. MICARDIS [Concomitant]
  5. LIPITOR [Concomitant]
  6. LENDORMIN [Concomitant]
  7. WYPAX [Concomitant]
  8. ALLOID [Concomitant]
  9. 8-HOUR BAYER [Concomitant]

REACTIONS (1)
  - INTERSTITIAL LUNG DISEASE [None]
